FAERS Safety Report 8525800-8 (Version None)
Quarter: 2012Q3

REPORT INFORMATION
  Report Type: 
  Country: None (occurrence: None)
  Receive Date: 20120720
  Receipt Date: 20120709
  Transmission Date: 20120928
  Serious: No
  Sender: FDA-Public Use
  Company Number: US-ASTRAZENECA-2012SE47092

PATIENT
  Age: 62 Year
  Sex: Female

DRUGS (2)
  1. TOPIMATE [Concomitant]
  2. ZOMIG-ZMT [Suspect]
     Route: 048

REACTIONS (1)
  - MIGRAINE [None]
